FAERS Safety Report 22638911 (Version 7)
Quarter: 2023Q4

REPORT INFORMATION
  Report Type: Report from Study
  Country: US (occurrence: US)
  Receive Date: 20230626
  Receipt Date: 20231117
  Transmission Date: 20240110
  Serious: Yes (Other)
  Sender: FDA-Public Use
  Company Number: US-ACADIA PHARMACEUTICALS INC.-ACA-2023-TRF-002168

PATIENT
  Age: 35 Year
  Sex: Female

DRUGS (6)
  1. DAYBUE [Suspect]
     Active Substance: TROFINETIDE
     Indication: Rett syndrome
     Dosage: 10 MILLILITER, BID
     Route: 048
     Dates: start: 20230525
  2. DAYBUE [Suspect]
     Active Substance: TROFINETIDE
     Dosage: 30 MILLILITER, BID
     Route: 048
     Dates: end: 20230908
  3. DAYBUE [Suspect]
     Active Substance: TROFINETIDE
     Dosage: 30 MILLILITER, BID
     Route: 048
  4. DAYBUE [Suspect]
     Active Substance: TROFINETIDE
     Dosage: 50 MILLILITER, BID
     Route: 048
  5. LAMOTRIGINE [Concomitant]
     Active Substance: LAMOTRIGINE
     Dosage: 100 MILLIGRAM
     Dates: start: 20220908
  6. LAMOTRIGINE [Concomitant]
     Active Substance: LAMOTRIGINE
     Dosage: 200 MILLIGRAM, BID

REACTIONS (7)
  - Seizure [Recovered/Resolved]
  - Faeces soft [Not Recovered/Not Resolved]
  - Weight increased [Not Recovered/Not Resolved]
  - Faeces soft [Recovered/Resolved]
  - Diarrhoea [Recovered/Resolved]
  - Diarrhoea [Not Recovered/Not Resolved]
  - Vomiting [Recovered/Resolved]

NARRATIVE: CASE EVENT DATE: 20230529
